FAERS Safety Report 15006593 (Version 1)
Quarter: 2018Q2

REPORT INFORMATION
  Report Type: Spontaneous
  Country: US (occurrence: US)
  Receive Date: 20180526
  Receipt Date: 20180526
  Transmission Date: 20180711
  Serious: Yes (Other)
  Sender: FDA-Public Use
  Company Number: None

PATIENT
  Age: 49 Year
  Sex: Female

DRUGS (4)
  1. METRONIDAZOLE 500 MG [Concomitant]
     Active Substance: METRONIDAZOLE
     Dates: start: 20180515
  2. CIPROFLOXACIN. [Suspect]
     Active Substance: CIPROFLOXACIN
     Indication: INFECTION
     Route: 048
     Dates: start: 20180515
  3. TRAMADOL 50 MG [Concomitant]
     Active Substance: TRAMADOL
     Dates: start: 20180515, end: 20180522
  4. HYDROCORTISONE/PRAMOXINE [Concomitant]
     Active Substance: HYDROCORTISONE\PRAMOXINE
     Dates: start: 20180503, end: 20180525

REACTIONS (5)
  - Sciatica [None]
  - Nerve injury [None]
  - Pain in extremity [None]
  - Pain [None]
  - Insomnia [None]

NARRATIVE: CASE EVENT DATE: 20180519
